FAERS Safety Report 5489789-0 (Version None)
Quarter: 2007Q4

REPORT INFORMATION
  Report Type: 
  Country: None (occurrence: None)
  Receive Date: 20071018
  Receipt Date: 20071009
  Transmission Date: 20080405
  Serious: Yes (Other)
  Sender: FDA-Public Use
  Company Number: US-PFIZER INC-2007085113

PATIENT
  Sex: Female
  Weight: 75 kg

DRUGS (3)
  1. DETROL [Suspect]
     Indication: HYPERTONIC BLADDER
  2. DETROL LA [Suspect]
     Indication: HYPERTONIC BLADDER
  3. ALL OTHER THERAPEUTIC PRODUCTS [Concomitant]

REACTIONS (3)
  - BALANCE DISORDER [None]
  - FALL [None]
  - WRIST FRACTURE [None]
